FAERS Safety Report 10018603 (Version 1)
Quarter: 2014Q1

REPORT INFORMATION
  Report Type: Spontaneous
  Country: FR (occurrence: FR)
  Receive Date: 20140318
  Receipt Date: 20140318
  Transmission Date: 20141002
  Serious: Yes (Hospitalization, Other)
  Sender: FDA-Public Use
  Company Number: FR-PFIZER INC-2014070889

PATIENT
  Age: 86 Year
  Sex: Male

DRUGS (15)
  1. LYRICA [Suspect]
     Dosage: 25 MG, 1X/DAY IN THE EVENING
  2. LEXOMIL [Suspect]
     Dosage: 3 MG, 2X/DAY
     Route: 048
  3. IMOVANE [Suspect]
     Dosage: 7.5 MG, 1X/DAY IN THE EVENING
  4. LAMALINE [Suspect]
     Dosage: 3 DF, DAILY
     Route: 048
  5. TOPALGIC [Suspect]
     Dosage: 50 MG, 2X/DAY
  6. INEXIUM [Concomitant]
  7. COUMADINE [Concomitant]
  8. DAFALGAN [Concomitant]
  9. OROCAL [Concomitant]
  10. ARANESP [Concomitant]
  11. UVEDOSE [Concomitant]
  12. OGAST [Concomitant]
  13. SPASFON [Concomitant]
  14. SPECIAFOLDINE [Concomitant]
  15. KALEORID [Concomitant]

REACTIONS (5)
  - Confusional state [Recovered/Resolved]
  - Bacterial prostatitis [Unknown]
  - Hyponatraemia [Unknown]
  - Hypokalaemia [Unknown]
  - Anaemia macrocytic [Unknown]
